FAERS Safety Report 9521521 (Version 1)
Quarter: 2013Q1

REPORT INFORMATION
  Report Type: Spontaneous
  Country: US (occurrence: None)
  Receive Date: 20130305
  Receipt Date: 20130305
  Transmission Date: 20140127
  Serious: Yes (Other)
  Sender: FDA-Public Use
  Company Number: 163-21880-12011627

PATIENT
  Age: 62 Year
  Sex: Male

DRUGS (15)
  1. REVLIMID (LENALIDOMIDE) (25 MILLIGRAM, CAPSULES) [Suspect]
     Indication: PLASMA CELL MYELOMA
     Dosage: 25 MG, 1 IN 1 D, PO
     Route: 048
     Dates: start: 20091007
  2. AMBIEN (ZOLPIDEM TARTRATE) [Concomitant]
  3. CALCIUM (CALCIUM) [Concomitant]
  4. COUMADIN (WARFARIN SODIUM) [Concomitant]
  5. DECADRON (DEXAMETHASONE) [Concomitant]
  6. LEVITRA (VARDENAFIL HYDROCHLORIDE) [Concomitant]
  7. LOTREL (LOTREL) [Concomitant]
  8. METOPROLOL (METOPROLOL) [Concomitant]
  9. NEXIUM [Concomitant]
  10. PERCOCET (OXYCOCET) [Concomitant]
  11. PROCRIT [Concomitant]
  12. PROSCAR [Concomitant]
  13. VITAMIN D (ERGOCALCIFEROL) [Concomitant]
  14. ZOCOR (SIMVASTATIN) [Concomitant]
  15. ZOMETA (ZOLEDRONIC ACID) [Concomitant]

REACTIONS (1)
  - Pulmonary embolism [None]
